FAERS Safety Report 26076928 (Version 1)
Quarter: 2025Q4

REPORT INFORMATION
  Report Type: Spontaneous
  Country: MX (occurrence: None)
  Receive Date: 20251120
  Receipt Date: 20251120
  Transmission Date: 20260118
  Serious: Yes (Hospitalization, Disabling)
  Sender: FDA-CTU
  Company Number: None

PATIENT
  Age: 39 Year
  Sex: Female
  Weight: 90 kg

DRUGS (2)
  1. INVESTIGATIONAL PRODUCT [Suspect]
     Active Substance: INVESTIGATIONAL PRODUCT
     Indication: Menopausal symptoms
     Dosage: FREQUENCY : AS NEEDED;?
     Route: 059
     Dates: start: 20250709, end: 20250719
  2. DEVICE [Suspect]
     Active Substance: DEVICE
     Dates: start: 20250710, end: 20250719

REACTIONS (6)
  - Ileus paralytic [None]
  - Abnormal weight gain [None]
  - Alopecia [None]
  - Asthenia [None]
  - Asthenia [None]
  - Injury [None]

NARRATIVE: CASE EVENT DATE: 20250907
